FAERS Safety Report 12651580 (Version 1)
Quarter: 2016Q3

REPORT INFORMATION
  Report Type: Spontaneous
  Country: US (occurrence: US)
  Receive Date: 20160815
  Receipt Date: 20160815
  Transmission Date: 20161109
  Serious: No
  Sender: FDA-Public Use
  Company Number: US-SHIRE-US201610034

PATIENT
  Sex: Female

DRUGS (2)
  1. LIALDA [Suspect]
     Active Substance: MESALAMINE
     Dosage: 1.2 G, UNKNOWN (4 PER DAY)
     Route: 048
     Dates: start: 2016
  2. LIALDA [Suspect]
     Active Substance: MESALAMINE
     Indication: INFLAMMATION
     Dosage: 1.2 G, UNKNOWN (2 PER DAY)
     Route: 048
     Dates: start: 20160707, end: 2016

REACTIONS (1)
  - Gastrointestinal disorder [Unknown]
